FAERS Safety Report 7875545-2 (Version None)
Quarter: 2011Q4

REPORT INFORMATION
  Report Type: 
  Country: None (occurrence: None)
  Receive Date: 20111031
  Receipt Date: 20111028
  Transmission Date: 20120403
  Serious: Yes (Death, Hospitalization, Other)
  Sender: FDA-Public Use
  Company Number: PHHY2011BR95331

PATIENT
  Sex: Female
  Weight: 48 kg

DRUGS (5)
  1. EXELON [Suspect]
     Dosage: 18 MG/10 CM2, 1 PATCH A DAY
     Route: 062
     Dates: start: 20080101
  2. SEROQUEL [Concomitant]
     Indication: DEMENTIA ALZHEIMER'S TYPE
     Dosage: 25 MG, 1 TABLET TWICE A DAY
     Route: 048
  3. EXELON [Suspect]
     Indication: DEMENTIA ALZHEIMER'S TYPE
     Dosage: 1 DF, 1 PATCH PER DAY
     Route: 062
  4. ORAP [Concomitant]
     Indication: DEMENTIA ALZHEIMER'S TYPE
     Dosage: 1 MG, 2 TABLETS TWICE A DAY
  5. LOSARTAN POTASSIUM [Concomitant]
     Indication: HYPERTENSION
     Dosage: 50 MG 1 TABLET A DAY

REACTIONS (5)
  - ABDOMINAL PAIN [None]
  - INTESTINAL OBSTRUCTION [None]
  - ABSCESS [None]
  - WRONG TECHNIQUE IN DRUG USAGE PROCESS [None]
  - INFECTION [None]
